FAERS Safety Report 6598079-4 (Version None)
Quarter: 2010Q1

REPORT INFORMATION
  Report Type: 
  Country: None (occurrence: None)
  Receive Date: 20100216
  Receipt Date: 20100201
  Transmission Date: 20100710
  Serious: Yes (Hospitalization)
  Sender: FDA-Public Use
  Company Number: 1-21555524

PATIENT
  Age: 11 Year
  Sex: Female
  Weight: 37.9207 kg

DRUGS (3)
  1. ALPRAZOLAM EXTENDED-RELEASE [Suspect]
     Dosage: 0.5 MG PER DAY
  2. QUETIAPINE [Suspect]
     Dosage: 400 MG PER DAY
  3. SERTRALINE (STRENGTH AND MANUFACTURER UNKNOWN) [Suspect]
     Dosage: 50 MG PER DAY

REACTIONS (9)
  - ANXIETY [None]
  - CONVERSION DISORDER [None]
  - DECREASED APPETITE [None]
  - DEPRESSION [None]
  - DRY MOUTH [None]
  - GLYCOSYLATED HAEMOGLOBIN INCREASED [None]
  - HYPERGLYCAEMIA [None]
  - POLLAKIURIA [None]
  - WEIGHT INCREASED [None]
